FAERS Safety Report 7212585-0 (Version None)
Quarter: 2011Q1

REPORT INFORMATION
  Report Type: 
  Country: None (occurrence: None)
  Receive Date: 20110106
  Receipt Date: 20101230
  Transmission Date: 20110831
  Serious: No
  Sender: FDA-Public Use
  Company Number: US-PFIZER INC-2010182198

PATIENT
  Sex: Male
  Weight: 106.58 kg

DRUGS (9)
  1. GABAPENTIN [Concomitant]
     Dosage: 300 MG, UNK
  2. PLAVIX [Concomitant]
     Dosage: 75 MG, UNK
  3. METOPROLOL [Concomitant]
     Dosage: 50 MG, UNK
  4. RAMIPRIL [Concomitant]
     Dosage: 5 MG, UNK
  5. DOXAZOSIN [Concomitant]
     Dosage: 2 MG, UNK
  6. CARBAMAZEPINE [Concomitant]
     Dosage: 200 MG, UNK
  7. NITROGLYCERIN [Concomitant]
     Dosage: 0.4 MG, AS NEEDED
  8. ISOSORBIDE MONONITRATE [Concomitant]
     Dosage: 60 MG, UNK
  9. LIPITOR [Suspect]
     Indication: BLOOD CHOLESTEROL INCREASED
     Dosage: 80 MG, 1X/DAY
     Route: 048
     Dates: start: 20101001

REACTIONS (2)
  - PAIN IN EXTREMITY [None]
  - PRURITUS GENERALISED [None]
